FAERS Safety Report 16212970 (Version 2)
Quarter: 2019Q2

REPORT INFORMATION
  Report Type: Spontaneous
  Country: BG (occurrence: BG)
  Receive Date: 20190418
  Receipt Date: 20190424
  Transmission Date: 20190711
  Serious: Yes (Hospitalization)
  Sender: FDA-Public Use
  Company Number: PHHY2019BG085346

PATIENT
  Age: 32 Year
  Sex: Male
  Weight: 75 kg

DRUGS (5)
  1. DEXAMETHASONE. [Concomitant]
     Active Substance: DEXAMETHASONE
     Indication: BRAIN OEDEMA
     Dosage: 4 MG, QD
     Route: 030
     Dates: start: 20190211
  2. TAFINLAR [Suspect]
     Active Substance: DABRAFENIB MESYLATE
     Indication: MALIGNANT MELANOMA
     Dosage: 2 DF, BID
     Route: 048
     Dates: start: 20190304, end: 20190408
  3. TAFINLAR [Suspect]
     Active Substance: DABRAFENIB MESYLATE
     Indication: METASTASES TO CENTRAL NERVOUS SYSTEM
  4. MEKINIST [Suspect]
     Active Substance: TRAMETINIB DIMETHYL SULFOXIDE
     Indication: METASTASES TO CENTRAL NERVOUS SYSTEM
  5. MEKINIST [Suspect]
     Active Substance: TRAMETINIB DIMETHYL SULFOXIDE
     Indication: MALIGNANT MELANOMA
     Dosage: 1 DF, QD
     Route: 048
     Dates: start: 20190304, end: 20190408

REACTIONS (3)
  - Melaena [Recovered/Resolved]
  - Haemorrhoids [Unknown]
  - Haematuria [Recovered/Resolved]

NARRATIVE: CASE EVENT DATE: 20190404
